FAERS Safety Report 8214602-8 (Version None)
Quarter: 2012Q1

REPORT INFORMATION
  Report Type: 
  Country: None (occurrence: None)
  Receive Date: 20120313
  Receipt Date: 20120228
  Transmission Date: 20120608
  Serious: Yes (Other)
  Sender: FDA-Public Use
  Company Number: CIO12003914

PATIENT
  Sex: Female

DRUGS (1)
  1. METAMUCIL, FORM/VERISON/TEXTURE/FLAVOR UNKNOWN (PSYLLIUM HYDROPHILIC M [Suspect]
     Dosage: UNK DISEM 1 ONLY, TOPICAL
     Route: 061
     Dates: start: 20120101, end: 20120101

REACTIONS (2)
  - ANAPHYLACTIC REACTION [None]
  - ACCIDENTAL EXPOSURE [None]
